FAERS Safety Report 23654344 (Version 1)
Quarter: 2024Q1

REPORT INFORMATION
  Report Type: Report from Study
  Country: AR (occurrence: AR)
  Receive Date: 20240320
  Receipt Date: 20240320
  Transmission Date: 20240410
  Serious: Yes (Hospitalization, Other)
  Sender: FDA-Public Use
  Company Number: AR-002147023-NVSC2024AR037387

PATIENT
  Age: 55 Year
  Sex: Female

DRUGS (5)
  1. KISQALI [Suspect]
     Active Substance: RIBOCICLIB
     Indication: Breast cancer metastatic
     Dosage: 600 MG, QD
     Route: 048
     Dates: start: 20240205, end: 20240215
  2. LETROZOLE [Suspect]
     Active Substance: LETROZOLE
     Indication: Breast cancer metastatic
     Dosage: 2.5 MG, QD
     Route: 048
     Dates: start: 20240205, end: 20240215
  3. TRAMADOL [Concomitant]
     Active Substance: TRAMADOL\TRAMADOL HYDROCHLORIDE
     Indication: Pain
     Dosage: UNK
     Route: 065
     Dates: start: 202312
  4. PREGABALIN [Concomitant]
     Active Substance: PREGABALIN
     Indication: Pain
     Dosage: UNK
     Route: 065
     Dates: start: 202312
  5. TAFIROL [Concomitant]
     Indication: Pain
     Dosage: 1 MG
     Route: 065

REACTIONS (9)
  - Yellow skin [Recovered/Resolved]
  - Metastases to liver [Unknown]
  - Pharyngeal inflammation [Not Recovered/Not Resolved]
  - Dysphagia [Not Recovered/Not Resolved]
  - Malaise [Unknown]
  - Oropharyngeal discomfort [Unknown]
  - Vomiting [Recovered/Resolved]
  - Cough [Unknown]
  - Agitation [Unknown]

NARRATIVE: CASE EVENT DATE: 20240201
